FAERS Safety Report 5190934-5 (Version None)
Quarter: 2006Q4

REPORT INFORMATION
  Report Type: 
  Country: None (occurrence: None)
  Receive Date: 20061222
  Receipt Date: 20061207
  Transmission Date: 20070319
  Serious: Yes (Other)
  Sender: FDA-Public Use
  Company Number: CA-BOEHRINGER INGELHEIM PHARMACEUTICALS, INC.-2006-CN-00775CN

PATIENT
  Sex: Male

DRUGS (8)
  1. FLOMAX [Suspect]
     Indication: BENIGN PROSTATIC HYPERPLASIA
     Route: 048
  2. NOVO OXYBUTYNIN [Concomitant]
  3. APO ATENOL [Concomitant]
  4. PROSCAR [Concomitant]
  5. LIPITOR [Concomitant]
  6. IMDUR [Concomitant]
  7. PRINIVIL [Concomitant]
  8. ASAPHEN [Concomitant]

REACTIONS (1)
  - DRUG INEFFECTIVE [None]
